FAERS Safety Report 12695612 (Version 1)
Quarter: 2016Q3

REPORT INFORMATION
  Report Type: Spontaneous
  Country: US (occurrence: US)
  Receive Date: 20160829
  Receipt Date: 20160829
  Transmission Date: 20161109
  Serious: No
  Sender: FDA-Public Use
  Company Number: US-KALEO, INC-2016SA031753

PATIENT
  Age: 18 Year
  Sex: Male

DRUGS (2)
  1. AUVI-Q [Suspect]
     Active Substance: EPINEPHRINE
     Indication: FOOD ALLERGY
     Dosage: UNKNOWN DOSE, ONCE, IM OR SC
     Dates: start: 20160208
  2. BENADRYL [Suspect]
     Active Substance: DIPHENHYDRAMINE HYDROCHLORIDE
     Route: 065
     Dates: start: 20160208

REACTIONS (3)
  - Hypersomnia [Unknown]
  - Energy increased [Unknown]
  - Syncope [Unknown]

NARRATIVE: CASE EVENT DATE: 201602
